FAERS Safety Report 12894012 (Version 3)
Quarter: 2016Q4

REPORT INFORMATION
  Report Type: Report from Study
  Country: None (occurrence: US)
  Receive Date: 20161028
  Receipt Date: 20161118
  Transmission Date: 20170207
  Serious: Yes (Hospitalization, Disabling, Other)
  Sender: FDA-Public Use
  Company Number: US-ABBVIE-16K-163-1763241-00

PATIENT
  Sex: Female

DRUGS (6)
  1. BENAZEPRIL [Concomitant]
     Active Substance: BENAZEPRIL HYDROCHLORIDE
     Indication: HYPERTENSION
  2. PRILOSEC [Concomitant]
     Active Substance: OMEPRAZOLE MAGNESIUM
     Indication: DYSPEPSIA
  3. HUMIRA [Suspect]
     Active Substance: ADALIMUMAB
     Indication: PRODUCT USED FOR UNKNOWN INDICATION
     Route: 058
     Dates: start: 2006, end: 2011
  4. HUMIRA [Suspect]
     Active Substance: ADALIMUMAB
     Route: 058
  5. FLEXERIL [Concomitant]
     Active Substance: CYCLOBENZAPRINE HYDROCHLORIDE
     Indication: RHEUMATOID ARTHRITIS
  6. KLONOPIN [Concomitant]
     Active Substance: CLONAZEPAM
     Indication: MUSCLE TWITCHING

REACTIONS (11)
  - Joint range of motion decreased [Unknown]
  - Foot deformity [Unknown]
  - Rheumatoid arthritis [Not Recovered/Not Resolved]
  - Joint injury [Recovered/Resolved]
  - Joint contracture [Recovered/Resolved]
  - Joint dislocation [Unknown]
  - Localised infection [Unknown]
  - Sepsis [Unknown]
  - Postoperative abscess [Recovered/Resolved]
  - Joint surgery [Unknown]
  - Post procedural complication [Unknown]

NARRATIVE: CASE EVENT DATE: 2011
